FAERS Safety Report 23362763 (Version 1)
Quarter: 2024Q1

REPORT INFORMATION
  Report Type: Spontaneous
  Country: US (occurrence: US)
  Receive Date: 20240103
  Receipt Date: 20240103
  Transmission Date: 20240410
  Serious: Yes (Death, Other)
  Sender: FDA-Public Use
  Company Number: US-INCYTE CORPORATION-2024IN000003

PATIENT

DRUGS (8)
  1. JAKAFI [Suspect]
     Active Substance: RUXOLITINIB
     Indication: Myelofibrosis
     Dosage: TAKE 4 TABS (5MG) IN AM AND 3 TABS (5MG) IN PM FOR 2 DAYS
     Route: 048
     Dates: start: 201808
  2. JAKAFI [Suspect]
     Active Substance: RUXOLITINIB
     Dosage: TAKE 3 TABS (5MG) BID FOR 2 DAYS
     Route: 048
     Dates: start: 201808
  3. JAKAFI [Suspect]
     Active Substance: RUXOLITINIB
     Dosage: TAKE 3 TABS (5MG) IN AM AND 2 TABS (5MG) IN PM FOR 2 DAYS
     Route: 048
     Dates: start: 201808
  4. JAKAFI [Suspect]
     Active Substance: RUXOLITINIB
     Dosage: TAKE 2 TABS (5MG) BID FOR 2 DAYS.
     Route: 048
     Dates: start: 201808
  5. JAKAFI [Suspect]
     Active Substance: RUXOLITINIB
     Dosage: TAKE 2 TABS (5MG) IN AM AND 1 TAB (5MG) IN PM FOR 2 DAYS.
     Route: 048
     Dates: start: 201808
  6. JAKAFI [Suspect]
     Active Substance: RUXOLITINIB
     Dosage: TAKE 1 TAB (5MG) BID FOR 2 DAYS
     Route: 048
     Dates: start: 201808
  7. JAKAFI [Suspect]
     Active Substance: RUXOLITINIB
     Dosage: TAKE 1 TAB (5MG) QD FOR 2 DAYS
     Route: 048
     Dates: start: 201808
  8. INREBIC [Concomitant]
     Active Substance: FEDRATINIB HYDROCHLORIDE
     Indication: Product used for unknown indication
     Dosage: UNK
     Route: 065

REACTIONS (1)
  - Death [Fatal]

NARRATIVE: CASE EVENT DATE: 20231204
